FAERS Safety Report 17089939 (Version 1)
Quarter: 2019Q4

REPORT INFORMATION
  Report Type: Spontaneous
  Country: FR (occurrence: FR)
  Receive Date: 20191129
  Receipt Date: 20191129
  Transmission Date: 20200122
  Serious: Yes (Other)
  Sender: FDA-Public Use
  Company Number: FR-AMGEN-FRASP2019197472

PATIENT
  Age: 75 Year
  Sex: Female

DRUGS (2)
  1. PROLIA [Suspect]
     Active Substance: DENOSUMAB
     Indication: OSTEOPOROSIS
     Dosage: UNK
     Route: 065
     Dates: start: 201704, end: 2017
  2. CODEINE [Concomitant]
     Active Substance: CODEINE
     Dosage: UNK

REACTIONS (1)
  - Dental necrosis [Not Recovered/Not Resolved]

NARRATIVE: CASE EVENT DATE: 2017
